FAERS Safety Report 4663414-0 (Version None)
Quarter: 2005Q2

REPORT INFORMATION
  Report Type: 
  Country: None (occurrence: None)
  Receive Date: 20050511
  Receipt Date: 20050128
  Transmission Date: 20051028
  Serious: Yes (Other)
  Sender: FDA-Public Use
  Company Number: 394086

PATIENT
  Age: 47 Year
  Sex: Female
  Weight: 73.5 kg

DRUGS (3)
  1. PEGASYS [Suspect]
     Indication: HEPATITIS C
     Dates: start: 20030815, end: 20040115
  2. PEG-INTRON [Suspect]
     Indication: HEPATITIS C
     Dosage: 120 MCG 1 PER WEEK; SUBCUTANEOUS
     Route: 058
     Dates: start: 20021004, end: 20030815
  3. REBETOL [Suspect]
     Indication: HEPATITIS C
     Dosage: 1000 MG DAILY; ORAL
     Route: 048
     Dates: start: 20021004

REACTIONS (3)
  - DRUG INEFFECTIVE [None]
  - DYSPNOEA [None]
  - SARCOIDOSIS [None]
